FAERS Safety Report 6879537-1 (Version None)
Quarter: 2010Q3

REPORT INFORMATION
  Report Type: 
  Country: None (occurrence: None)
  Receive Date: 20100728
  Receipt Date: 20100712
  Transmission Date: 20110219
  Serious: Yes (Other)
  Sender: FDA-Public Use
  Company Number: PHHY2010US46017

PATIENT
  Sex: Female

DRUGS (3)
  1. SANDOSTATIN [Suspect]
     Indication: CARCINOID SYNDROME
     Dosage: 50 UG, TID
     Dates: start: 20100701
  2. SANDOSTATIN [Suspect]
     Dosage: 15 UG, EVERY 3 DAYS
  3. SANDOSTATIN [Suspect]
     Dosage: 75 UG, TID
     Route: 058

REACTIONS (4)
  - ABDOMINAL PAIN UPPER [None]
  - DIARRHOEA [None]
  - DRY MOUTH [None]
  - THIRST [None]
